FAERS Safety Report 4738793-6 (Version None)
Quarter: 2005Q3

REPORT INFORMATION
  Report Type: 
  Country: None (occurrence: None)
  Receive Date: 20050804
  Receipt Date: 20050722
  Transmission Date: 20060218
  Serious: Yes (Life-Threatening)
  Sender: FDA-Public Use
  Company Number: 2005106650

PATIENT
  Age: 41 Year
  Sex: Female
  Weight: 43 kg

DRUGS (5)
  1. DOXORUBICIN HCL [Suspect]
     Indication: NON-HODGKIN'S LYMPHOMA
     Dosage: INTRAVENOUS
     Route: 042
     Dates: start: 19901001
  2. CYCLOPHOSPHAMIDE [Suspect]
     Indication: NON-HODGKIN'S LYMPHOMA
     Dosage: CYCLICAL, INTRAVENOUS
     Route: 042
     Dates: start: 19901001
  3. ETOPOSIDE [Suspect]
     Indication: NON-HODGKIN'S LYMPHOMA
     Dosage: CYCLICAL, INTRAVENOUS
     Route: 042
     Dates: start: 19901001
  4. CHLORAMBUCIL (CHLORAMBUCIL) [Suspect]
     Indication: NON-HODGKIN'S LYMPHOMA
     Dosage: 5 TABLETS CYCLICAL, ORAL
     Route: 048
     Dates: start: 19990401, end: 20000401
  5. RITUXIMAB (RITUXIMAB) [Suspect]
     Indication: NON-HODGKIN'S LYMPHOMA
     Dosage: 1 WK, INTRAVENOUS
     Route: 042
     Dates: start: 20010601, end: 20010621

REACTIONS (4)
  - ADENOCARCINOMA [None]
  - B-CELL LYMPHOMA [None]
  - DISEASE RECURRENCE [None]
  - METASTASIS [None]
